FAERS Safety Report 20631283 (Version 1)
Quarter: 2022Q1

REPORT INFORMATION
  Report Type: Spontaneous
  Country: US (occurrence: None)
  Receive Date: 20220323
  Receipt Date: 20220323
  Transmission Date: 20220423
  Serious: Yes (Hospitalization, Other)
  Sender: FDA-Public Use
  Company Number: None

PATIENT
  Age: 35 Year
  Sex: Female

DRUGS (1)
  1. TALTZ [Suspect]
     Active Substance: IXEKIZUMAB
     Indication: Product used for unknown indication
     Dosage: 80 MG EVERY 28 DAY UNDER THE SKIN?
     Route: 058
     Dates: start: 20220124, end: 20220311

REACTIONS (6)
  - Injection site reaction [None]
  - Urticaria [None]
  - Injection site pain [None]
  - Injection site pain [None]
  - Headache [None]
  - Post procedural complication [None]

NARRATIVE: CASE EVENT DATE: 20220311
